FAERS Safety Report 18994223 (Version 12)
Quarter: 2024Q2

REPORT INFORMATION
  Report Type: Report from Study
  Country: DE (occurrence: DE)
  Receive Date: 20210310
  Receipt Date: 20240619
  Transmission Date: 20240716
  Serious: Yes (Hospitalization, Other)
  Sender: FDA-Public Use
  Company Number: DE-ROCHE-2239868

PATIENT
  Age: 32 Year
  Sex: Female
  Weight: 48.8 kg

DRUGS (16)
  1. LYRICA [Suspect]
     Active Substance: PREGABALIN
     Indication: Product used for unknown indication
     Dosage: 25 MG, 4X/DAY (3-1-3-1GRADUALLY DISCONTINUED)
     Route: 065
  2. LYRICA [Suspect]
     Active Substance: PREGABALIN
     Dosage: 25 MILLIGRAM
     Route: 065
  3. OCREVUS [Suspect]
     Active Substance: OCRELIZUMAB
     Indication: Relapsing-remitting multiple sclerosis
     Dosage: 300 MG, 2X/WEEK
     Route: 042
     Dates: start: 20181012
  4. OCREVUS [Suspect]
     Active Substance: OCRELIZUMAB
     Dosage: 300 MILLIGRAM
     Route: 042
     Dates: start: 20181026
  5. OCREVUS [Suspect]
     Active Substance: OCRELIZUMAB
     Dosage: SUBSEQUENT INFUSIONS: 22/OCT/2019, 20/OCT/2020
     Route: 042
     Dates: start: 20190410
  6. OCREVUS [Suspect]
     Active Substance: OCRELIZUMAB
     Dosage: 600 MILLIGRAM
     Route: 042
     Dates: start: 20191022
  7. OCREVUS [Suspect]
     Active Substance: OCRELIZUMAB
     Dosage: 600 MG
     Route: 065
     Dates: start: 20201020
  8. OCREVUS [Suspect]
     Active Substance: OCRELIZUMAB
     Dosage: 600 MILLIGRAM, EVERY 178 DAYS
     Route: 042
     Dates: start: 20210416
  9. MIRTAZAPINE [Concomitant]
     Active Substance: MIRTAZAPINE
     Indication: Neuralgia
     Dosage: 7.5 MG, 1X/DAY, 0-0-0-1
     Route: 065
  10. PANTOZOL [Concomitant]
     Active Substance: PANTOPRAZOLE SODIUM
     Indication: Product used for unknown indication
     Dosage: 40 MILLIGRAM, PRN (40 MG, AS REQUIRED)
     Route: 065
  11. DALFAMPRIDINE [Concomitant]
     Active Substance: DALFAMPRIDINE
     Indication: Product used for unknown indication
     Dosage: 10 MILLIGRAM, PRN  AS REQUIRED
     Route: 065
  12. DRONABINOL [Concomitant]
     Active Substance: DRONABINOL
     Indication: Product used for unknown indication
     Dosage: 4 DROP, 4X/DAY
     Route: 065
  13. DRONABINOL [Concomitant]
     Active Substance: DRONABINOL
     Dosage: FREQ:.25 D;
     Route: 065
  14. Simplex [Concomitant]
     Indication: Product used for unknown indication
     Dosage: UNK
     Route: 065
  15. NABIXIMOLS [Concomitant]
     Active Substance: NABIXIMOLS
     Indication: Product used for unknown indication
     Dosage: UNK, SPRAY
     Route: 065
  16. AQUALIBRA [Concomitant]
     Indication: Product used for unknown indication
     Dosage: UNK
     Route: 065

REACTIONS (46)
  - Multiple sclerosis [Not Recovered/Not Resolved]
  - Cardiovascular insufficiency [Recovered/Resolved]
  - Multiple sclerosis relapse [Recovered/Resolved]
  - Hyperthyroidism [Not Recovered/Not Resolved]
  - Toxicity to various agents [Recovered/Resolved]
  - Toxic nodular goitre [Recovered/Resolved]
  - Pyelitis [Recovered/Resolved]
  - Neuralgia [Not Recovered/Not Resolved]
  - Pyelonephritis [Not Recovered/Not Resolved]
  - Leukopenia [Recovered/Resolved]
  - Condition aggravated [Not Recovered/Not Resolved]
  - Sensory disturbance [Recovered/Resolved]
  - Iron deficiency [Recovered/Resolved]
  - Gastrointestinal hypermotility [Recovered/Resolved]
  - Oral mucosal erythema [Recovered/Resolved]
  - Oral pain [Recovered/Resolved]
  - Gastrointestinal infection [Recovered/Resolved]
  - Muscle spasticity [Not Recovered/Not Resolved]
  - Urinary tract infection [Recovered/Resolved]
  - Heavy menstrual bleeding [Not Recovered/Not Resolved]
  - Menstrual disorder [Recovered/Resolved]
  - Muscular weakness [Recovered/Resolved]
  - Blood thyroid stimulating hormone decreased [Not Recovered/Not Resolved]
  - Body temperature increased [Recovered/Resolved]
  - B-lymphocyte count decreased [Recovered/Resolved]
  - Gastrointestinal pain [Recovered/Resolved]
  - Renal pain [Not Recovered/Not Resolved]
  - Influenza like illness [Recovered/Resolved]
  - Nasopharyngitis [Recovered/Resolved]
  - Nausea [Recovered/Resolved]
  - Pain [Recovered/Resolved]
  - Headache [Recovered/Resolved]
  - Fatigue [Recovered/Resolved]
  - Hypotension [Recovered/Resolved]
  - Heart rate increased [Recovered/Resolved]
  - Blood pressure decreased [Recovered/Resolved]
  - Asthenia [Recovered/Resolved]
  - Ataxia [Recovered/Resolved]
  - Weight decreased [Recovered/Resolved]
  - Abnormal loss of weight [Not Recovered/Not Resolved]
  - Insomnia [Recovering/Resolving]
  - Chronic gastritis [Recovered/Resolved]
  - Irritability [Recovering/Resolving]
  - Blood thyroid stimulating hormone abnormal [Recovering/Resolving]
  - Feeling jittery [Recovering/Resolving]
  - Peripheral coldness [Not Recovered/Not Resolved]

NARRATIVE: CASE EVENT DATE: 20181012
